FAERS Safety Report 12117409 (Version 2)
Quarter: 2016Q2

REPORT INFORMATION
  Report Type: Spontaneous
  Country: US (occurrence: US)
  Receive Date: 20160225
  Receipt Date: 20160406
  Transmission Date: 20160815
  Serious: No
  Sender: FDA-Public Use
  Company Number: US-ACTELION PHARMACEUTICALS US, INC.-A-NJ2016-132031

PATIENT
  Age: 70 Year
  Sex: Male

DRUGS (4)
  1. CENTRUM SILVER [Concomitant]
     Active Substance: MINERALS\VITAMINS
     Dosage: UNK
  2. FOLIC ACID. [Concomitant]
     Active Substance: FOLIC ACID
     Dosage: 0.8 MG, UNK
  3. VALCHLOR [Suspect]
     Active Substance: MECHLORETHAMINE
     Indication: MYCOSIS FUNGOIDES
     Dosage: UNK
     Route: 061
     Dates: start: 20160128
  4. MULTIVITAMIN [Concomitant]
     Active Substance: VITAMINS
     Dosage: UNK

REACTIONS (6)
  - Rash erythematous [Unknown]
  - Application site exfoliation [Unknown]
  - Erythema [Unknown]
  - Application site pain [Unknown]
  - Pruritus [Unknown]
  - Pain of skin [Unknown]
